FAERS Safety Report 17111542 (Version 3)
Quarter: 2019Q4

REPORT INFORMATION
  Report Type: Spontaneous
  Country: US (occurrence: US)
  Receive Date: 20191204
  Receipt Date: 20191216
  Transmission Date: 20200122
  Serious: Yes (Hospitalization, Other)
  Sender: FDA-Public Use
  Company Number: US-PFIZER INC-12946

PATIENT
  Age: 61 Year
  Sex: Female

DRUGS (2)
  1. METHOTREXATE SODIUM. [Suspect]
     Active Substance: METHOTREXATE SODIUM
     Indication: BREAST CANCER METASTATIC
     Dosage: 20 MG, 1X/DAY
     Route: 042
  2. METHOTREXATE SODIUM. [Suspect]
     Active Substance: METHOTREXATE SODIUM
     Dosage: 30 MG, UNK

REACTIONS (12)
  - Back pain [Unknown]
  - Arrhythmia [Unknown]
  - Sense of oppression [Unknown]
  - Neurological symptom [Unknown]
  - Neurotoxicity [Recovered/Resolved]
  - Aphasia [Recovered/Resolved]
  - Dizziness [Unknown]
  - Nausea [Unknown]
  - Palpitations [Unknown]
  - Supraventricular extrasystoles [Recovered/Resolved]
  - Loss of consciousness [Unknown]
  - Cardiotoxicity [Recovered/Resolved]
